FAERS Safety Report 10830543 (Version 1)
Quarter: 2015Q1

REPORT INFORMATION
  Report Type: Spontaneous
  Country: FR (occurrence: FR)
  Receive Date: 20150219
  Receipt Date: 20150219
  Transmission Date: 20150721
  Serious: Yes (Hospitalization)
  Sender: FDA-Public Use
  Company Number: FR-JNJFOC-20150208228

PATIENT
  Age: 82 Year
  Sex: Male

DRUGS (5)
  1. TOPALGIC LP [Concomitant]
     Active Substance: TRAMADOL
     Route: 065
  2. XARELTO [Suspect]
     Active Substance: RIVAROXABAN
     Indication: PRODUCT USED FOR UNKNOWN INDICATION
     Route: 048
     Dates: start: 2014, end: 20150109
  3. INEXIUM [Concomitant]
     Active Substance: ESOMEPRAZOLE
     Route: 065
  4. MACROGOL [Concomitant]
     Active Substance: POLYETHYLENE GLYCOLS
     Route: 065
  5. EFFEXOR [Concomitant]
     Active Substance: VENLAFAXINE HYDROCHLORIDE
     Route: 065

REACTIONS (2)
  - Cerebrovascular accident [Recovering/Resolving]
  - Haematuria [Recovered/Resolved]

NARRATIVE: CASE EVENT DATE: 20150109
